FAERS Safety Report 10108962 (Version 2)
Quarter: 2014Q2

REPORT INFORMATION
  Report Type: Report from Study
  Country: US (occurrence: None)
  Receive Date: 20140423
  Receipt Date: 20140630
  Transmission Date: 20141212
  Serious: Yes (Hospitalization, Other)
  Sender: FDA-Public Use
  Company Number: 2012US000575

PATIENT
  Age: 28 Year
  Sex: Male
  Weight: 53.5 kg

DRUGS (25)
  1. PONATINIB (AP24534) TABLET [Suspect]
     Indication: BLAST CRISIS IN MYELOGENOUS LEUKAEMIA
     Route: 048
     Dates: start: 20110514, end: 20120412
  2. ACYCLOVIR (ACICLOVIR SODIUM) [Concomitant]
  3. MORPHINE (MORPHINE HYDROCHLORIDE) [Concomitant]
  4. ALBUTEROL (SALBUTAMOL SULFATE) [Concomitant]
  5. ADVAIR (FLUTICASONE PROPIONATE, SALMETEROL XINAFOATE) [Concomitant]
  6. MULTIVITAMIN (VITAMINS NOS) [Concomitant]
  7. MUPIROCIN 2% OINTMENT (MUPIROCIN) [Concomitant]
  8. RANITIDINE (RANITIDINE HYDROCHLORIDE) [Concomitant]
  9. LEVOFLOXACIN (LEVOFLOXACIN) [Concomitant]
  10. BACTRIM DS (SULFAMETHOXAZOLE, TRIMETHOPRIM) [Concomitant]
  11. DELTASONE (PREDNISONE) [Concomitant]
  12. QVAR (BECLOMETASONE DIPROPIONATE) [Concomitant]
  13. IPRATROPIUM BROMIDE (IPRATROPIUM BROMIDE) [Concomitant]
  14. ERGOCALCIFEROL (ERGOCALCIFEROL) [Concomitant]
  15. NICOTINE PATCH (NICOTINE) [Concomitant]
  16. LOPRESSOR  (METOPROLOL TARTRATE) TABLET [Concomitant]
  17. ELAVIL (AMITRIPTYLINE HYDROCHLORIDE) [Concomitant]
  18. AZITHROMYCIN (AZITHROMYCIN) [Concomitant]
  19. NYSTATIN (NYSTATIN) [Concomitant]
  20. COLLAGENASE (COLLAGENASE) [Concomitant]
  21. PULMOZYNE (DONASE ALFA) [Concomitant]
  22. LASIX (FUROSEMIDE SODIUM) TABLET [Concomitant]
  23. MS CONTIN (MORPHINE SULFATE) TABLET [Concomitant]
  24. SILVER SULFADIAZINE (SULFADIAZINE SILVER) CREAM [Concomitant]
  25. XYLOCAINE (LIDOCAINE HYDROCHLORIDE) OINTMENT, CREAM [Concomitant]

REACTIONS (17)
  - Pulmonary embolism [None]
  - Pneumonia [None]
  - Thrombocytopenia [None]
  - Pericarditis constrictive [None]
  - Cardiomyopathy [None]
  - Graft versus host disease [None]
  - Condition aggravated [None]
  - Feeling abnormal [None]
  - Hypersomnia [None]
  - Asthenia [None]
  - Cardiac failure [None]
  - Cardiac failure [None]
  - Cardiac failure congestive [None]
  - Red blood cell count decreased [None]
  - Haemoglobin decreased [None]
  - Haematocrit decreased [None]
  - Respiratory distress [None]
